FAERS Safety Report 5675029-6 (Version None)
Quarter: 2008Q1

REPORT INFORMATION
  Report Type: 
  Country: None (occurrence: None)
  Receive Date: 20080320
  Receipt Date: 20080313
  Transmission Date: 20080703
  Serious: Yes (Hospitalization)
  Sender: FDA-Public Use
  Company Number: PHBS2008BR02025

PATIENT
  Age: 65 Year
  Sex: Male
  Weight: 65 kg

DRUGS (6)
  1. EXJADE [Suspect]
     Indication: MYELOFIBROSIS
     Dosage: 125 MG/D
     Route: 048
     Dates: start: 20070101
  2. EXJADE [Suspect]
     Dosage: 250 MG/D
     Route: 048
  3. DESFERAL [Concomitant]
  4. HYDREA [Concomitant]
     Dosage: 1000 MG/D
     Route: 048
  5. ALLOPURINOL [Concomitant]
     Indication: BLOOD URIC ACID INCREASED
     Dosage: 300 MG DAILY
     Route: 048
     Dates: end: 20080201
  6. BLOOD TRANSFUSION, AUXILIARY PRODUCTS [Concomitant]

REACTIONS (4)
  - DRUG INEFFECTIVE [None]
  - SERUM FERRITIN INCREASED [None]
  - SPLENECTOMY [None]
  - SPLENOMEGALY [None]
